FAERS Safety Report 5420236-0 (Version None)
Quarter: 2007Q3

REPORT INFORMATION
  Report Type: 
  Country: None (occurrence: None)
  Receive Date: 20070815
  Receipt Date: 20070730
  Transmission Date: 20080115
  Serious: Yes (Death, Hospitalization, Other)
  Sender: FDA-Public Use
  Company Number: 158878ISR

PATIENT
  Age: 90 Year
  Sex: Female

DRUGS (1)
  1. DICLOFENAC [Suspect]
     Indication: SPONDYLITIS
     Dosage: 150 MG (50 MG, 3 IN 1 D), ORAL
     Route: 048
     Dates: start: 20070530

REACTIONS (1)
  - PANCREATITIS ACUTE [None]
